FAERS Safety Report 8978438 (Version 2)
Quarter: 2013Q1

REPORT INFORMATION
  Report Type: Spontaneous
  Country: US (occurrence: US)
  Receive Date: 20121221
  Receipt Date: 20130301
  Transmission Date: 20140127
  Serious: Yes (Death, Hospitalization, Other)
  Sender: FDA-Public Use
  Company Number: US-PFIZER INC-2012318595

PATIENT
  Age: 83 Year
  Sex: Female
  Weight: 45.35 kg

DRUGS (5)
  1. REVATIO [Suspect]
     Indication: PULMONARY HYPERTENSION
     Dosage: 80 MG, 3X/DAY
     Route: 048
  2. LETAIRIS [Concomitant]
     Dosage: UNK
  3. SIMVASTATIN [Concomitant]
     Dosage: UNK
  4. LEVOTHYROXINE [Concomitant]
     Dosage: UNK
  5. FUROSEMIDE [Concomitant]
     Dosage: UNK

REACTIONS (6)
  - Pulmonary hypertension [Fatal]
  - Cardiac failure congestive [Unknown]
  - Renal disorder [Unknown]
  - Dyspnoea [Unknown]
  - Oedema [Unknown]
  - Incorrect dose administered [Unknown]
